FAERS Safety Report 11389924 (Version 1)
Quarter: 2015Q3

REPORT INFORMATION
  Report Type: Spontaneous
  Country: NG (occurrence: NG)
  Receive Date: 20150818
  Receipt Date: 20150818
  Transmission Date: 20151125
  Serious: Yes (Hospitalization, Other)
  Sender: FDA-Public Use
  Company Number: NG-PAR PHARMACEUTICAL COMPANIES-2015SCPR014205

PATIENT

DRUGS (2)
  1. DONEPEZIL HYDROCHLORIDE. [Suspect]
     Active Substance: DONEPEZIL HYDROCHLORIDE
     Indication: DEMENTIA
  2. DONEPEZIL HYDROCHLORIDE. [Suspect]
     Active Substance: DONEPEZIL HYDROCHLORIDE
     Indication: PARKINSON^S DISEASE
     Dosage: UNK UNK, UNKNOWN
     Route: 065

REACTIONS (4)
  - Jealous delusion [Recovering/Resolving]
  - Product use issue [Unknown]
  - Depression [Recovering/Resolving]
  - Aggression [Recovering/Resolving]
